FAERS Safety Report 5653705-9 (Version None)
Quarter: 2008Q1

REPORT INFORMATION
  Report Type: 
  Country: None (occurrence: None)
  Receive Date: 20080204
  Receipt Date: 20071207
  Transmission Date: 20080703
  Serious: Yes (Hospitalization)
  Sender: FDA-Public Use
  Company Number: SPV1-2007-03947

PATIENT
  Age: 50 Year
  Sex: Male
  Weight: 68 kg

DRUGS (5)
  1. 476 (MESALAZINE/MESALAMINE)(476 (MESALAZINE/MESALAMINE)) TABLET [Suspect]
     Indication: COLITIS ULCERATIVE
     Dosage: 1.2 G, 1X/DAY:QD, ORAL
     Route: 048
     Dates: start: 20070629, end: 20070810
  2. ASPIRIN [Concomitant]
  3. OMEPRAZOLE [Concomitant]
  4. XANAX [Concomitant]
  5. ACETAMINOPHEN [Concomitant]

REACTIONS (1)
  - COLITIS ULCERATIVE [None]
